FAERS Safety Report 6162183-5 (Version None)
Quarter: 2009Q2

REPORT INFORMATION
  Report Type: 
  Country: None (occurrence: None)
  Receive Date: 20090421
  Receipt Date: 20090410
  Transmission Date: 20091009
  Serious: Yes (Death, Other)
  Sender: FDA-Public Use
  Company Number: US-TEVA-191317USA

PATIENT
  Sex: Male

DRUGS (9)
  1. AZITHROMYCIN 250MG TABLET [Suspect]
  2. SALBUTAMOL [Concomitant]
  3. CYANOCOBALAMIN [Concomitant]
  4. EPOETIN NOS [Concomitant]
  5. SIMVASTATIN [Concomitant]
  6. WARFARIN SODIUM [Concomitant]
  7. DIGOXIN [Concomitant]
  8. FUROSEMIDE [Concomitant]
  9. POTASSIUM CHLORIDE [Concomitant]

REACTIONS (1)
  - SEPSIS [None]
